FAERS Safety Report 7574911-2 (Version None)
Quarter: 2011Q2

REPORT INFORMATION
  Report Type: 
  Country: None (occurrence: None)
  Receive Date: 20110627
  Receipt Date: 20110622
  Transmission Date: 20111010
  Serious: Yes (Other)
  Sender: FDA-Public Use
  Company Number: NL-ABBOTT-11P-114-0713901-00

PATIENT
  Sex: Male
  Weight: 83 kg

DRUGS (2)
  1. BICULATAMIDE [Concomitant]
     Indication: PRODUCT USED FOR UNKNOWN INDICATION
     Dates: start: 20110422
  2. LEUPROLIDE ACETATE [Suspect]
     Indication: PROSTATE CANCER
     Dates: start: 20101215

REACTIONS (6)
  - HOT FLUSH [None]
  - PELVIC PAIN [None]
  - NEUROENDOCRINE TUMOUR [None]
  - METASTASIS [None]
  - GYNAECOMASTIA [None]
  - PROSTATIC SPECIFIC ANTIGEN INCREASED [None]
